FAERS Safety Report 17000183 (Version 3)
Quarter: 2020Q1

REPORT INFORMATION
  Report Type: Report from Study
  Country: CA (occurrence: CA)
  Receive Date: 20191106
  Receipt Date: 20200121
  Transmission Date: 20200409
  Serious: Yes (Hospitalization, Other)
  Sender: FDA-Public Use
  Company Number: CA-TAIHO ONCOLOGY  INC-EU-2019-03392

PATIENT
  Age: 68 Year
  Sex: Male
  Weight: 61.4 kg

DRUGS (3)
  1. LONSURF [Suspect]
     Active Substance: TIPIRACIL HYDROCHLORIDE\TRIFLURIDINE
     Indication: COLORECTAL CANCER
     Dosage: CYCLES 1 AND 2
     Route: 048
     Dates: start: 20190812, end: 20191006
  2. LONSURF [Suspect]
     Active Substance: TIPIRACIL HYDROCHLORIDE\TRIFLURIDINE
     Dosage: CYCLE 3
     Route: 048
     Dates: start: 20191008, end: 20191104
  3. LONSURF [Suspect]
     Active Substance: TIPIRACIL HYDROCHLORIDE\TRIFLURIDINE
     Dosage: CYCLE 4 AND 5
     Route: 048
     Dates: start: 20191105, end: 20191230

REACTIONS (14)
  - Platelet count increased [Recovering/Resolving]
  - Blood creatinine increased [Recovering/Resolving]
  - Dehydration [Unknown]
  - Haematocrit decreased [Recovering/Resolving]
  - Blood potassium increased [Recovering/Resolving]
  - Dyspnoea [Unknown]
  - Red blood cell count decreased [Recovering/Resolving]
  - Fatigue [Recovering/Resolving]
  - Acute kidney injury [Unknown]
  - Blood magnesium increased [Recovering/Resolving]
  - Blood sodium decreased [Recovering/Resolving]
  - Haemoglobin decreased [Recovering/Resolving]
  - Neutropenia [Recovered/Resolved]
  - Intentional dose omission [Unknown]

NARRATIVE: CASE EVENT DATE: 2019
